FAERS Safety Report 14127417 (Version 1)
Quarter: 2017Q4

REPORT INFORMATION
  Report Type: Spontaneous
  Country: US (occurrence: US)
  Receive Date: 20171026
  Receipt Date: 20171026
  Transmission Date: 20180321
  Serious: No
  Sender: FDA-Public Use
  Company Number: US-TEVA-749815USA

PATIENT
  Sex: Male

DRUGS (1)
  1. CARBIDOPA AND LEVODOPA [Suspect]
     Active Substance: CARBIDOPA\LEVODOPA
     Dosage: 1 DF= 25 MG CARBIDOPA AND 100 MG LEVODOPA
     Route: 065
     Dates: start: 20170227

REACTIONS (4)
  - Drug ineffective [Unknown]
  - Movement disorder [Unknown]
  - Feeling abnormal [Unknown]
  - Product substitution issue [Unknown]
